FAERS Safety Report 8229665-3 (Version None)
Quarter: 2012Q1

REPORT INFORMATION
  Report Type: 
  Country: None (occurrence: None)
  Receive Date: 20120322
  Receipt Date: 20120315
  Transmission Date: 20120608
  Serious: Yes (Hospitalization)
  Sender: FDA-Public Use
  Company Number: PHHY2012DE023406

PATIENT
  Sex: Male
  Weight: 95 kg

DRUGS (10)
  1. EXFORGE [Suspect]
     Indication: HYPERTENSION
     Dosage: 1 DF, PER DAY
     Route: 048
     Dates: start: 20090319, end: 20111221
  2. ORAL ANTIDIABETICS [Concomitant]
     Indication: DIABETES MELLITUS
  3. PLATELET AGGREGATION INHIBITORS [Concomitant]
  4. RASILEZ [Suspect]
     Indication: HYPERTENSION
     Dosage: 150 MG, PER DAY
     Route: 048
     Dates: start: 20090224, end: 20111221
  5. HMG COA REDUCTASE INHIBITORS [Concomitant]
  6. ANGIOTENSIN II ANTAGONISTS [Concomitant]
  7. OTHER ANTIHYPERTENSIVES [Concomitant]
  8. CALCIUM CHANNEL BLOCKERS [Concomitant]
  9. BETA BLOCKING AGENTS [Concomitant]
  10. DIURETICS [Concomitant]

REACTIONS (1)
  - HISTIOCYTOSIS [None]
